FAERS Safety Report 8398403 (Version 8)
Quarter: 2013Q4

REPORT INFORMATION
  Report Type: Spontaneous
  Country: US (occurrence: US)
  Receive Date: 20120209
  Receipt Date: 20131127
  Transmission Date: 20140711
  Serious: Yes (Hospitalization, Other)
  Sender: FDA-Public Use
  Company Number: US-PFIZER INC-2012032814

PATIENT
  Age: 52 Year
  Sex: Female
  Weight: 63 kg

DRUGS (5)
  1. LYRICA [Suspect]
     Indication: FIBROMYALGIA
     Dosage: 150 MG, 2X/DAY
     Route: 048
     Dates: start: 201205
  2. LYRICA [Suspect]
     Indication: NEUROPATHY PERIPHERAL
  3. METFORMIN HCL [Suspect]
     Indication: DIABETES MELLITUS
     Dosage: UNK
     Route: 048
  4. INSULIN [Suspect]
     Indication: DIABETES MELLITUS
     Dosage: UNK
  5. OXYCODONE [Concomitant]
     Indication: BREAKTHROUGH PAIN
     Dosage: 10 MG, 4X/DAY

REACTIONS (11)
  - Cellulitis [Recovering/Resolving]
  - Arterial thrombosis [Unknown]
  - Diabetes mellitus [Not Recovered/Not Resolved]
  - Diabetic neuropathy [Not Recovered/Not Resolved]
  - Fibromyalgia [Unknown]
  - Cystitis [Unknown]
  - Pain [Unknown]
  - Nausea [Unknown]
  - Local swelling [Unknown]
  - Drug tolerance [Unknown]
  - Drug hypersensitivity [Unknown]
